FAERS Safety Report 5864205-5 (Version None)
Quarter: 2008Q3

REPORT INFORMATION
  Report Type: 
  Country: None (occurrence: None)
  Receive Date: 20080829
  Receipt Date: 20080820
  Transmission Date: 20090109
  Serious: Yes (Other)
  Sender: FDA-Public Use
  Company Number: ES-ROCHE-581987

PATIENT
  Age: 67 Year
  Sex: Female

DRUGS (1)
  1. BONIVA [Suspect]
     Indication: OSTEOPOROSIS
     Dosage: FORM REPORTED AS FILM COATED TABLET
     Route: 048
     Dates: start: 20070130, end: 20080730

REACTIONS (2)
  - JAW DISORDER [None]
  - RESORPTION BONE INCREASED [None]
